FAERS Safety Report 15555804 (Version 2)
Quarter: 2018Q4

REPORT INFORMATION
  Report Type: Spontaneous
  Country: JP (occurrence: JP)
  Receive Date: 20181026
  Receipt Date: 20181102
  Transmission Date: 20190205
  Serious: Yes (Hospitalization)
  Sender: FDA-Public Use
  Company Number: JP-ASTRAZENECA-2018SF39580

PATIENT
  Age: 75 Year
  Sex: Female
  Weight: 52 kg

DRUGS (9)
  1. REZALTAS [Suspect]
     Active Substance: AZELNIDIPINE\OLMESARTAN MEDOXOMIL
     Dosage: EVERY DAY
     Route: 048
  2. EPALRESTAT [Suspect]
     Active Substance: EPALRESTAT
     Route: 048
  3. FORXIGA [Suspect]
     Active Substance: DAPAGLIFLOZIN
     Indication: TYPE 2 DIABETES MELLITUS
     Route: 048
     Dates: start: 20180925, end: 20181017
  4. METHYCOBAL [Suspect]
     Active Substance: METHYLCOBALAMIN
     Route: 048
  5. FORXIGA [Suspect]
     Active Substance: DAPAGLIFLOZIN
     Indication: TYPE 2 DIABETES MELLITUS
     Route: 048
     Dates: start: 20180829, end: 20180924
  6. EPADEL [Suspect]
     Active Substance: ICOSAPENT
     Route: 048
  7. LYRICA [Suspect]
     Active Substance: PREGABALIN
     Route: 048
  8. EQUMET [Suspect]
     Active Substance: METFORMIN HYDROCHLORIDE\VILDAGLIPTIN
     Route: 048
  9. MAINTATE [Suspect]
     Active Substance: BISOPROLOL FUMARATE
     Route: 048

REACTIONS (1)
  - Urinary tract infection [Not Recovered/Not Resolved]

NARRATIVE: CASE EVENT DATE: 20181017
